FAERS Safety Report 15317375 (Version 1)
Quarter: 2018Q3

REPORT INFORMATION
  Report Type: Spontaneous
  Country: US (occurrence: US)
  Receive Date: 20180824
  Receipt Date: 20180824
  Transmission Date: 20181010
  Serious: Yes (Death, Other)
  Sender: FDA-Public Use
  Company Number: US-GUERBET-US-20180208

PATIENT
  Age: 30 Week
  Sex: Female

DRUGS (3)
  1. OPTIRAY 240 [Suspect]
     Active Substance: IOVERSOL
     Indication: VENOGRAM
     Route: 042
  2. LIPIODOL [Suspect]
     Active Substance: ETHIODIZED OIL
     Indication: LYMPHANGIOGRAM
     Route: 027
  3. OPTIRAY 240 [Suspect]
     Active Substance: IOVERSOL
     Route: 042

REACTIONS (4)
  - Primary hypothyroidism [Recovered/Resolved]
  - Drug administered to patient of inappropriate age [Recovered/Resolved]
  - Death [Fatal]
  - Overdose [Recovered/Resolved]
